FAERS Safety Report 5754779-7 (Version None)
Quarter: 2008Q2

REPORT INFORMATION
  Report Type: 
  Country: None (occurrence: None)
  Receive Date: 20080527
  Receipt Date: 20080506
  Transmission Date: 20081010
  Serious: Yes (Death)
  Sender: FDA-Public Use
  Company Number: 2008AL003666

PATIENT
  Age: 89 Year
  Sex: Male

DRUGS (4)
  1. DIGOXIN [Suspect]
     Dosage: 0.125MG DAILY PO
     Route: 048
  2. COREG [Concomitant]
  3. DIOVAN [Concomitant]
  4. BETAPACE [Concomitant]

REACTIONS (3)
  - HYPOTENSION [None]
  - NAUSEA [None]
  - VOMITING [None]
